FAERS Safety Report 9061544 (Version 1)
Quarter: 2013Q1

REPORT INFORMATION
  Report Type: Spontaneous
  Country: KR (occurrence: KR)
  Receive Date: 20130204
  Receipt Date: 20130204
  Transmission Date: 20140127
  Serious: Yes (Hospitalization, Other)
  Sender: FDA-Public Use
  Company Number: KR-MPIJNJ-2013-00675

PATIENT
  Sex: 0

DRUGS (8)
  1. VELCADE [Suspect]
     Indication: TRANSPLANT REJECTION
  2. CYCLOSPORIN [Concomitant]
     Dosage: 125 MG, UNK
  3. CYCLOSPORIN [Concomitant]
     Dosage: 75 MG, UNK
  4. AZATHIOPRINE [Concomitant]
     Dosage: 50 MG, UNK
  5. PREDNISOLONE [Concomitant]
     Dosage: 5 MG, UNK
  6. LOSARTAN [Concomitant]
     Dosage: 25 MG, UNK
  7. FEROBA [Concomitant]
  8. PANTOPRAZOLE [Concomitant]
     Dosage: 40 MG, UNK

REACTIONS (2)
  - Therapeutic response unexpected [Unknown]
  - Off label use [None]
